FAERS Safety Report 23334265 (Version 2)
Quarter: 2023Q4

REPORT INFORMATION
  Report Type: Report from Study
  Country: FR (occurrence: FR)
  Receive Date: 20231223
  Receipt Date: 20231227
  Transmission Date: 20240110
  Serious: Yes (Death, Other)
  Sender: FDA-Public Use
  Company Number: FR-UCBSA-2023058896

PATIENT
  Age: 76 Year
  Sex: Male
  Weight: 88 kg

DRUGS (17)
  1. ROZANOLIXIZUMAB [Suspect]
     Active Substance: ROZANOLIXIZUMAB
     Dosage: 4 MILLILITER, WEEKLY (QW)
     Route: 058
     Dates: start: 20231105, end: 20231205
  2. ENOXAPARIN [Suspect]
     Active Substance: ENOXAPARIN
     Indication: Atrial fibrillation
     Dosage: 0.7 MILLILITER, 2X/DAY (BID)
     Route: 058
     Dates: start: 20231123, end: 20231205
  3. ASPIRIN [Suspect]
     Active Substance: ASPIRIN
     Indication: Myocardial infarction
     Dosage: 75 MILLIGRAM, 2X/DAY (BID)
     Route: 048
     Dates: start: 20231122, end: 20231205
  4. RISPERIDONE [Concomitant]
     Active Substance: RISPERIDONE
     Indication: Behaviour disorder
     Dosage: 0.5 MILLIGRAM, ONCE DAILY (QD)
     Route: 048
     Dates: start: 20231127
  5. ATORVASTATIN [Concomitant]
     Active Substance: ATORVASTATIN
     Indication: Infarction
     Dosage: 40 MILLIGRAM, ONCE DAILY (QD)
     Route: 048
     Dates: start: 20231127
  6. LANSOPRAZOLE [Concomitant]
     Active Substance: LANSOPRAZOLE
     Indication: Product used for unknown indication
     Dosage: 30 MILLIGRAM, ONCE DAILY (QD)
     Route: 048
     Dates: start: 20231121
  7. AMIODARONE [Concomitant]
     Active Substance: AMIODARONE
     Indication: Atrial fibrillation
     Dosage: 200 MILLIGRAM, ONCE DAILY (QD)
     Route: 048
     Dates: start: 20231121
  8. EZETIMIBE [Concomitant]
     Active Substance: EZETIMIBE
     Indication: Product used for unknown indication
  9. ALLOPURINOL [Concomitant]
     Active Substance: ALLOPURINOL
     Indication: Product used for unknown indication
     Dosage: UNK
  10. BISOPROLOL [Concomitant]
     Active Substance: BISOPROLOL\BISOPROLOL FUMARATE
     Indication: Product used for unknown indication
     Dosage: UNK
  11. MYTELASE [Concomitant]
     Active Substance: AMBENONIUM CHLORIDE
     Indication: Product used for unknown indication
     Dosage: UNK
  12. FUROSEMIDE [Concomitant]
     Active Substance: FUROSEMIDE
     Indication: Product used for unknown indication
     Dosage: UNK
  13. SPIRONOLACTONE [Concomitant]
     Active Substance: SPIRONOLACTONE
     Indication: Product used for unknown indication
     Dosage: UNK
  14. DAPAGLIFLOZIN [Concomitant]
     Active Substance: DAPAGLIFLOZIN
     Indication: Product used for unknown indication
     Dosage: UNK
  15. ENTRESTO [Concomitant]
     Active Substance: SACUBITRIL\VALSARTAN
     Indication: Product used for unknown indication
     Dosage: UNK
  16. RACECADOTRIL [Concomitant]
     Active Substance: RACECADOTRIL
     Indication: Product used for unknown indication
  17. PHOCYTAN [Concomitant]
     Active Substance: .ALPHA.-GLUCOSE-1-PHOSPHATE
     Indication: Product used for unknown indication

REACTIONS (4)
  - Epistaxis [Fatal]
  - Cardiac failure [Fatal]
  - Myasthenia gravis [Unknown]
  - Gastrointestinal tube insertion [Unknown]

NARRATIVE: CASE EVENT DATE: 20231201
